FAERS Safety Report 4493965-3 (Version None)
Quarter: 2004Q4

REPORT INFORMATION
  Report Type: 
  Country: None (occurrence: None)
  Receive Date: 20041103
  Receipt Date: 20041103
  Transmission Date: 20050328
  Serious: Yes (Other)
  Sender: FDA-Public Use
  Company Number: None

PATIENT
  Age: 74 Year
  Sex: Male
  Weight: 92.5338 kg

DRUGS (2)
  1. WARFARIN SODIUM [Suspect]
     Indication: DEEP VEIN THROMBOSIS
     Dosage: 5 MG QD EXCEPT THURSDAY 7.5 MG
     Dates: start: 20040501, end: 20040601
  2. WARFARIN SODIUM [Suspect]
     Indication: EMBOLISM
     Dosage: 5 MG QD EXCEPT THURSDAY 7.5 MG
     Dates: start: 20040501, end: 20040601

REACTIONS (1)
  - INTERNATIONAL NORMALISED RATIO ABNORMAL [None]
